FAERS Safety Report 4924854-5 (Version None)
Quarter: 2006Q1

REPORT INFORMATION
  Report Type: 
  Country: None (occurrence: None)
  Receive Date: 20060227
  Receipt Date: 20050706
  Transmission Date: 20060701
  Serious: Yes (Hospitalization)
  Sender: FDA-Public Use
  Company Number: US-MERCK-0507USA01050

PATIENT
  Sex: Female
  Weight: 80 kg

DRUGS (3)
  1. VIOXX [Suspect]
     Indication: KNEE OPERATION
     Route: 048
     Dates: start: 20020101, end: 20040101
  2. ATENOLOL [Concomitant]
     Route: 065
  3. LIPITOR [Concomitant]
     Route: 065

REACTIONS (3)
  - INCORRECT DOSE ADMINISTERED [None]
  - OVERDOSE [None]
  - THROMBOSIS [None]
